FAERS Safety Report 8891145 (Version 1)
Quarter: 2012Q4

REPORT INFORMATION
  Report Type: 
  Country: US (occurrence: US)
  Receive Date: 20121107
  Receipt Date: 20121107
  Transmission Date: 20130627
  Serious: Yes (Other)
  Sender: FDA-Public Use
  Company Number: US-ASTRAZENECA-2012SE82655

PATIENT
  Age: 67 Year
  Sex: Male

DRUGS (5)
  1. BRILINTA [Suspect]
     Indication: ACUTE CORONARY SYNDROME
     Route: 048
     Dates: start: 201204
  2. TOPROL XL [Suspect]
     Route: 048
  3. ASPIRIN [Concomitant]
  4. LIPITOR [Concomitant]
  5. QUINAPRIL [Concomitant]

REACTIONS (2)
  - Bradycardia [Unknown]
  - Blood pressure systolic decreased [Unknown]
